FAERS Safety Report 17366675 (Version 1)
Quarter: 2020Q1

REPORT INFORMATION
  Report Type: Spontaneous
  Country: JP (occurrence: JP)
  Receive Date: 20200204
  Receipt Date: 20200204
  Transmission Date: 20200409
  Serious: Yes (Other)
  Sender: FDA-Public Use
  Company Number: NVSJ2020JP001202

PATIENT
  Age: 85 Year
  Sex: Male

DRUGS (1)
  1. RIFAMPICIN CAPSULES [Suspect]
     Active Substance: RIFAMPIN
     Indication: TUBERCULOSIS
     Dosage: UNK
     Route: 048
     Dates: start: 20200110, end: 20200121

REACTIONS (4)
  - Haematochezia [Unknown]
  - Faeces discoloured [Unknown]
  - Nausea [Unknown]
  - Decreased appetite [Unknown]

NARRATIVE: CASE EVENT DATE: 20200124
